FAERS Safety Report 11536427 (Version 1)
Quarter: 2015Q3

REPORT INFORMATION
  Report Type: Spontaneous
  Country: JP (occurrence: JP)
  Receive Date: 20150922
  Receipt Date: 20150922
  Transmission Date: 20151125
  Serious: Yes (Hospitalization)
  Sender: FDA-Public Use
  Company Number: JP-PFIZER INC-2015311264

PATIENT
  Age: 81 Year
  Sex: Male
  Weight: 56 kg

DRUGS (1)
  1. VFEND [Suspect]
     Active Substance: VORICONAZOLE
     Indication: PROPHYLAXIS
     Dosage: 200 MG 2X/DAY (BETWEEN MORNING AND EVENING; BEFORE BEDTIME)
     Route: 048
     Dates: start: 201506

REACTIONS (3)
  - Drug ineffective [Unknown]
  - Pneumonia bacterial [Not Recovered/Not Resolved]
  - Drug level decreased [Unknown]

NARRATIVE: CASE EVENT DATE: 2015
